FAERS Safety Report 4656240-X (Version None)
Quarter: 2005Q2

REPORT INFORMATION
  Report Type: 
  Country: None (occurrence: None)
  Receive Date: 20050509
  Receipt Date: 20050309
  Transmission Date: 20051028
  Serious: No
  Sender: FDA-Public Use
  Company Number: US-GLAXOSMITHKLINE-A0549050A

PATIENT
  Sex: Female

DRUGS (11)
  1. AVANDAMET [Suspect]
     Route: 048
  2. TRIAMCINOLONE ACETONIDE [Concomitant]
     Route: 065
  3. LOTREL [Concomitant]
  4. SYNTHROID [Concomitant]
     Route: 065
  5. SINGULAIR [Concomitant]
  6. TRICOR [Concomitant]
  7. PRAVACHOL [Concomitant]
  8. FLONASE [Concomitant]
  9. TOPROL-XL [Concomitant]
     Route: 065
  10. ALLEGRA [Concomitant]
  11. DETROL [Concomitant]

REACTIONS (2)
  - BLOOD GLUCOSE INCREASED [None]
  - DIARRHOEA [None]
